FAERS Safety Report 7043671-6 (Version None)
Quarter: 2010Q4

REPORT INFORMATION
  Report Type: 
  Country: None (occurrence: None)
  Receive Date: 20101013
  Receipt Date: 20101004
  Transmission Date: 20110411
  Serious: Yes (Other)
  Sender: FDA-Public Use
  Company Number: GB-ELI_LILLY_AND_COMPANY-GB201010000454

PATIENT
  Age: 46 Year
  Sex: Female
  Weight: 44.95 kg

DRUGS (5)
  1. BYETTA [Suspect]
     Indication: DIABETES MELLITUS
     Dosage: 10 UG, UNK
     Route: 058
     Dates: start: 20090712
  2. ATORVASTATIN [Concomitant]
  3. GLICLAZIDE [Concomitant]
  4. METFORMIN [Concomitant]
  5. RAMIPRIL [Concomitant]

REACTIONS (3)
  - NAUSEA [None]
  - VOMITING [None]
  - WEIGHT DECREASED [None]
